FAERS Safety Report 13765357 (Version 1)
Quarter: 2017Q3

REPORT INFORMATION
  Report Type: Report from Study
  Country: US (occurrence: US)
  Receive Date: 20170718
  Receipt Date: 20170718
  Transmission Date: 20171127
  Serious: No
  Sender: FDA-Public Use
  Company Number: PHEH2017US021819

PATIENT
  Sex: Male

DRUGS (2)
  1. ENTRESTO [Suspect]
     Active Substance: SACUBITRIL\VALSARTAN
     Dosage: (1 HALF IN MORNING, AND THE OTHER HALF IN EVENING) (SACUBITRIL 97MG/VALSARTAN103MG), BID
     Route: 048
  2. ENTRESTO [Suspect]
     Active Substance: SACUBITRIL\VALSARTAN
     Indication: CARDIAC FAILURE
     Dosage: 1 DF, UNK
     Route: 065

REACTIONS (3)
  - Hypotension [Unknown]
  - Drug prescribing error [Unknown]
  - Wrong technique in product usage process [Unknown]
